FAERS Safety Report 7801387-X (Version None)
Quarter: 2011Q4

REPORT INFORMATION
  Report Type: 
  Country: None (occurrence: None)
  Receive Date: 20111007
  Receipt Date: 20110928
  Transmission Date: 20120403
  Serious: Yes (Other)
  Sender: FDA-Public Use
  Company Number: US-BAYER-2011-093930

PATIENT
  Age: 42 Year
  Sex: Female

DRUGS (1)
  1. MIRENA [Suspect]
     Indication: VAGINAL HAEMORRHAGE
     Dosage: 20 ?G, CONT

REACTIONS (14)
  - SWELLING [None]
  - INCREASED APPETITE [None]
  - ABNORMAL WEIGHT GAIN [None]
  - THINKING ABNORMAL [None]
  - GENERALISED ANXIETY DISORDER [None]
  - INSOMNIA [None]
  - MIGRAINE [None]
  - VISION BLURRED [None]
  - DEPRESSION [None]
  - MOOD SWINGS [None]
  - PELVIC PAIN [None]
  - LOSS OF LIBIDO [None]
  - MEMORY IMPAIRMENT [None]
  - ARTHRALGIA [None]
